FAERS Safety Report 20224229 (Version 1)
Quarter: 2021Q4

REPORT INFORMATION
  Report Type: Report from Study
  Country: BR (occurrence: BR)
  Receive Date: 20211223
  Receipt Date: 20211223
  Transmission Date: 20220303
  Serious: Yes (Other)
  Sender: FDA-Public Use
  Company Number: BR-UCBSA-2021058977

PATIENT
  Age: 65 Year
  Sex: Female
  Weight: 59 kg

DRUGS (5)
  1. CERTOLIZUMAB PEGOL [Suspect]
     Active Substance: CERTOLIZUMAB PEGOL
     Indication: Rheumatoid arthritis
     Dosage: 400 MILLIGRAM, EV 4 WEEKS
     Route: 058
     Dates: start: 20200130
  2. IRON [Suspect]
     Active Substance: IRON
     Indication: Anaemia
     Route: 048
  3. PURAN [Concomitant]
     Active Substance: LEVOTHYROXINE SODIUM
     Indication: Hypothyroidism
     Dosage: 88 MILLIGRAM, UNK
     Route: 048
     Dates: start: 1985
  4. EUTHYROX [Concomitant]
     Active Substance: LEVOTHYROXINE SODIUM
     Indication: Hypothyroidism
     Dosage: 100 MILLIGRAM, UNK
     Route: 048
  5. CHOLECALCIFEROL [Concomitant]
     Active Substance: CHOLECALCIFEROL
     Indication: Product used for unknown indication
     Route: 048

REACTIONS (9)
  - Rheumatoid arthritis [Unknown]
  - Cataract [Not Recovered/Not Resolved]
  - Anaemia [Not Recovered/Not Resolved]
  - Gait disturbance [Unknown]
  - Impaired driving ability [Unknown]
  - Abdominal pain upper [Unknown]
  - Red blood cell count abnormal [Unknown]
  - Weight decreased [Unknown]
  - Drug ineffective [Unknown]

NARRATIVE: CASE EVENT DATE: 20200501
